FAERS Safety Report 6888992-2 (Version None)
Quarter: 2010Q3

REPORT INFORMATION
  Report Type: 
  Country: None (occurrence: None)
  Receive Date: 20100730
  Receipt Date: 20071206
  Transmission Date: 20110219
  Serious: No
  Sender: FDA-Public Use
  Company Number: US-PFIZER INC-2007059397

PATIENT
  Sex: Female
  Weight: 77.11 kg

DRUGS (9)
  1. LIPITOR [Suspect]
     Indication: BLOOD CHOLESTEROL INCREASED
     Dates: start: 20050101
  2. CHANTIX [Suspect]
     Indication: SMOKING CESSATION THERAPY
     Route: 048
     Dates: start: 20070702, end: 20071127
  3. FOLGARD [Concomitant]
  4. ACETYLSALICYLIC ACID SRT [Concomitant]
  5. HERBAL NOS/MINERALS NOS/VITAMINS NOS [Concomitant]
  6. CALCIUM [Concomitant]
  7. VITAMIN D [Concomitant]
  8. HERBAL PREPARATION INGREDIENTS UNKNOWN [Concomitant]
  9. MULTIPLE VITAMINS [Concomitant]
     Route: 048

REACTIONS (7)
  - DEPRESSED MOOD [None]
  - DEPRESSION [None]
  - DRUG INEFFECTIVE [None]
  - LOW DENSITY LIPOPROTEIN INCREASED [None]
  - MICTURITION URGENCY [None]
  - SOMNOLENCE [None]
  - URINARY RETENTION [None]
